FAERS Safety Report 6275258-7 (Version None)
Quarter: 2009Q3

REPORT INFORMATION
  Report Type: 
  Country: None (occurrence: None)
  Receive Date: 20090721
  Receipt Date: 20090708
  Transmission Date: 20100115
  Serious: Yes (Congenital Anomaly)
  Sender: FDA-Public Use
  Company Number: A0681510A

PATIENT
  Sex: Male

DRUGS (3)
  1. PAXIL [Suspect]
     Indication: DEPRESSION
     Dosage: 20MG PER DAY
     Dates: start: 19980401
  2. VITAMIN TAB [Concomitant]
  3. BUSPAR [Concomitant]

REACTIONS (4)
  - CARDIAC MURMUR [None]
  - DRUG EXPOSURE DURING PREGNANCY [None]
  - MITRAL VALVE PROLAPSE [None]
  - MULTIPLE CONGENITAL ABNORMALITIES [None]
